FAERS Safety Report 7827032-5 (Version None)
Quarter: 2011Q4

REPORT INFORMATION
  Report Type: 
  Country: None (occurrence: None)
  Receive Date: 20111020
  Receipt Date: 20111011
  Transmission Date: 20120403
  Serious: Yes (Other)
  Sender: FDA-Public Use
  Company Number: JP-ASTELLAS-2011JP007332

PATIENT

DRUGS (5)
  1. METHYLPREDNISOLONE [Concomitant]
     Indication: PROPHYLAXIS AGAINST GRAFT VERSUS HOST DISEASE
     Route: 065
  2. ANTI-THYMOCYTE GLOBULIN NOS [Concomitant]
     Route: 065
  3. PROGRAF [Suspect]
     Indication: PROPHYLAXIS AGAINST GRAFT VERSUS HOST DISEASE
     Route: 065
  4. MYCOPHENOLATE MOFETIL [Concomitant]
     Indication: PROPHYLAXIS AGAINST GRAFT VERSUS HOST DISEASE
     Route: 065
  5. FLUDARABINE PHOSPHATE [Concomitant]
     Route: 065

REACTIONS (5)
  - ACUTE GRAFT VERSUS HOST DISEASE [None]
  - EPSTEIN-BARR VIRAEMIA [None]
  - FEBRILE NEUTROPENIA [None]
  - CYTOMEGALOVIRUS VIRAEMIA [None]
  - DRUG INEFFECTIVE [None]
